FAERS Safety Report 23107208 (Version 2)
Quarter: 2024Q1

REPORT INFORMATION
  Report Type: Spontaneous
  Country: US (occurrence: US)
  Receive Date: 20231026
  Receipt Date: 20240103
  Transmission Date: 20240409
  Serious: Yes (Hospitalization, Other)
  Sender: FDA-Public Use
  Company Number: US-BRISTOL-MYERS SQUIBB COMPANY-2023-150559

PATIENT
  Age: 76 Year
  Sex: Female
  Weight: 63.05 kg

DRUGS (1)
  1. REVLIMID [Suspect]
     Active Substance: LENALIDOMIDE
     Indication: Plasma cell myeloma
     Dosage: 3W, 1W OFF
     Route: 048

REACTIONS (6)
  - Sepsis [Recovering/Resolving]
  - White blood cell count decreased [Recovering/Resolving]
  - Urinary tract infection [Recovering/Resolving]
  - Neutrophil count decreased [Recovering/Resolving]
  - Full blood count decreased [Unknown]
  - Liver abscess [Unknown]

NARRATIVE: CASE EVENT DATE: 20230901
